FAERS Safety Report 9331267 (Version 2)
Quarter: 2013Q2

REPORT INFORMATION
  Report Type: Spontaneous
  Country: US (occurrence: US)
  Receive Date: 20130605
  Receipt Date: 20130610
  Transmission Date: 20140414
  Serious: Yes (Hospitalization, Other)
  Sender: FDA-Public Use
  Company Number: US-VERTEX PHARMACEUTICALS INC-2013-006690

PATIENT
  Age: 57 Year
  Sex: Male

DRUGS (6)
  1. INCIVEK [Suspect]
     Indication: HEPATITIS C
     Dosage: UNK
     Dates: start: 201203
  2. PEGINTERFERON [Suspect]
     Indication: HEPATITIS C
     Dosage: UNK
     Dates: start: 201203
  3. RIBAVIRIN [Suspect]
     Indication: HEPATITIS C
     Dosage: UNK
     Dates: start: 201203
  4. TENOFOVIR [Concomitant]
  5. EMTRICITABINE [Concomitant]
  6. RALTEGRAVIR [Concomitant]

REACTIONS (3)
  - Bursitis infective [Unknown]
  - Erythema multiforme [Unknown]
  - Off label use [Unknown]
